FAERS Safety Report 4842872-2 (Version None)
Quarter: 2005Q4

REPORT INFORMATION
  Report Type: 
  Country: None (occurrence: None)
  Receive Date: 20051201
  Receipt Date: 20051120
  Transmission Date: 20060501
  Serious: Yes (Other)
  Sender: FDA-Public Use
  Company Number: PHBS2005JO17192

PATIENT
  Age: 57 Year
  Sex: Male
  Weight: 110 kg

DRUGS (4)
  1. ZELMAC [Suspect]
     Indication: COLITIS
     Dosage: 12 MG, QD
     Route: 048
     Dates: start: 20051106, end: 20051109
  2. LANSOPRAZOLE [Concomitant]
  3. FASIGYN [Concomitant]
  4. MOVICOL [Concomitant]

REACTIONS (1)
  - URINARY RETENTION [None]
